FAERS Safety Report 6976874-7 (Version None)
Quarter: 2010Q3

REPORT INFORMATION
  Report Type: 
  Country: None (occurrence: None)
  Receive Date: 20100910
  Receipt Date: 20100901
  Transmission Date: 20110219
  Serious: Yes (Hospitalization)
  Sender: FDA-Public Use
  Company Number: B0672375A

PATIENT
  Sex: Male
  Weight: 54.4 kg

DRUGS (9)
  1. ARIXTRA [Suspect]
     Indication: THROMBOSIS PROPHYLAXIS
     Dosage: 7.5MG PER DAY
     Dates: start: 20100601, end: 20100613
  2. ATACAND [Concomitant]
     Dosage: 16MG PER DAY
     Route: 048
  3. SEROPLEX [Concomitant]
     Indication: DEPRESSION
     Dosage: .5UNIT PER DAY
     Route: 048
     Dates: start: 20100604, end: 20100611
  4. SPECIAFOLDINE [Concomitant]
     Dosage: 3UNIT PER DAY
     Route: 048
  5. FUMAFER [Concomitant]
     Dosage: 2UNIT PER DAY
     Route: 048
  6. ACETAMINOPHEN [Concomitant]
     Dosage: 1G FOUR TIMES PER DAY
     Route: 048
     Dates: end: 20100601
  7. UVEDOSE [Concomitant]
     Dosage: 1UNIT MONTHLY
     Route: 048
     Dates: end: 20100601
  8. PENICILLIN G [Concomitant]
     Route: 065
  9. BACTRIM [Concomitant]
     Route: 065

REACTIONS (12)
  - ASCITES [None]
  - CEREBRAL ISCHAEMIA [None]
  - HAEMOGLOBIN DECREASED [None]
  - HEMIPARESIS [None]
  - HYPOVOLAEMIC SHOCK [None]
  - MALAISE [None]
  - OVERDOSE [None]
  - PAIN [None]
  - RENAL DISORDER [None]
  - RETROPERITONEAL HAEMATOMA [None]
  - URINARY RETENTION [None]
  - VIITH NERVE PARALYSIS [None]
